FAERS Safety Report 18586882 (Version 1)
Quarter: 2020Q4

REPORT INFORMATION
  Report Type: Spontaneous
  Country: US (occurrence: US)
  Receive Date: 20201207
  Receipt Date: 20201207
  Transmission Date: 20210114
  Serious: No
  Sender: FDA-Public Use
  Company Number: US-VERTEX PHARMACEUTICALS-2020-023972

PATIENT
  Sex: Male
  Weight: 19.96 kg

DRUGS (2)
  1. KALYDECO [Suspect]
     Active Substance: IVACAFTOR
     Indication: CYSTIC FIBROSIS
     Dosage: 75 MG, BID
     Route: 048
  2. VIT D [Concomitant]
     Active Substance: VITAMIN D NOS
     Dosage: D-400 400 UNIT TABLET

REACTIONS (1)
  - Emergency care [Unknown]
